FAERS Safety Report 15059835 (Version 2)
Quarter: 2018Q4

REPORT INFORMATION
  Report Type: Spontaneous
  Country: US (occurrence: US)
  Receive Date: 20180625
  Receipt Date: 20181119
  Transmission Date: 20190204
  Serious: No
  Sender: FDA-Public Use
  Company Number: US-SA-2018SA158666

PATIENT
  Age: 80 Year
  Sex: Female

DRUGS (24)
  1. VITAMIN D3 [Concomitant]
     Active Substance: CHOLECALCIFEROL
  2. PRALUENT [Suspect]
     Active Substance: ALIROCUMAB
     Indication: HYPERLIPIDAEMIA
     Dosage: 150 MG, QOW
     Route: 058
     Dates: start: 20180608
  3. CALCIUM [Concomitant]
     Active Substance: CALCIUM
  4. LANTUS [Concomitant]
     Active Substance: INSULIN GLARGINE
  5. MEMANTINE HCL [Concomitant]
     Active Substance: MEMANTINE
  6. SOTALOL HCL [Concomitant]
     Active Substance: SOTALOL
  7. CIPRO [CIPROFLOXACIN HYDROCHLORIDE] [Concomitant]
  8. NYSTATIN. [Concomitant]
     Active Substance: NYSTATIN
  9. PREMARIN [Concomitant]
     Active Substance: ESTROGENS, CONJUGATED
  10. HUMALOG [Concomitant]
     Active Substance: INSULIN LISPRO
  11. HYDROCHLOROTH [Concomitant]
     Active Substance: HYDROCHLOROTHIAZIDE
  12. LEVOTHYROXINE. [Concomitant]
     Active Substance: LEVOTHYROXINE
  13. LORAZEPAM. [Concomitant]
     Active Substance: LORAZEPAM
  14. VALSARTAN. [Concomitant]
     Active Substance: VALSARTAN
  15. FENOFIBRATE. [Concomitant]
     Active Substance: FENOFIBRATE
  16. NOVOLOG [Concomitant]
     Active Substance: INSULIN ASPART
  17. WARFARIN SODIUM. [Concomitant]
     Active Substance: WARFARIN SODIUM
  18. PRALUENT [Suspect]
     Active Substance: ALIROCUMAB
     Dosage: 75 MG, QOW
     Route: 058
  19. AMLODIPINE [Concomitant]
     Active Substance: AMLODIPINE BESYLATE
  20. CARVEDILOL. [Concomitant]
     Active Substance: CARVEDILOL
  21. METRONIDAZOLE [METRONIDAZOLE SODIUM] [Concomitant]
  22. FAMOTIDINE. [Concomitant]
     Active Substance: FAMOTIDINE
  23. CEPHALEXINE [Concomitant]
     Active Substance: CEPHALEXIN
  24. VENTOLIN HFA [Concomitant]
     Active Substance: ALBUTEROL SULFATE

REACTIONS (7)
  - Arthralgia [Not Recovered/Not Resolved]
  - Pain [Not Recovered/Not Resolved]
  - Joint swelling [Not Recovered/Not Resolved]
  - Rhinorrhoea [Not Recovered/Not Resolved]
  - Musculoskeletal stiffness [Not Recovered/Not Resolved]
  - Abdominal pain upper [Not Recovered/Not Resolved]
  - Muscle spasms [Not Recovered/Not Resolved]
